FAERS Safety Report 5862297-0 (Version None)
Quarter: 2008Q3

REPORT INFORMATION
  Report Type: 
  Country: None (occurrence: None)
  Receive Date: 20080828
  Receipt Date: 20080819
  Transmission Date: 20090109
  Serious: Yes (Death)
  Sender: FDA-Public Use
  Company Number: DE-SANOFI-SYNTHELABO-F01200801206

PATIENT
  Sex: Male
  Weight: 60 kg

DRUGS (5)
  1. ZOFRAN [Concomitant]
     Indication: NAUSEA
     Route: 048
     Dates: start: 20080708, end: 20080711
  2. PANTOZOL [Concomitant]
     Indication: REFLUX OESOPHAGITIS
     Route: 048
     Dates: start: 20080708
  3. DEXAMETHASONE TAB [Concomitant]
     Indication: NAUSEA
     Route: 048
     Dates: start: 20080707, end: 20080709
  4. DOCETAXEL [Suspect]
     Route: 042
     Dates: start: 20080708, end: 20080708
  5. OXALIPLATIN [Suspect]
     Indication: GASTRIC CANCER
     Route: 042
     Dates: start: 20080708, end: 20080708

REACTIONS (5)
  - ABDOMINAL PAIN [None]
  - CARDIAC FAILURE CONGESTIVE [None]
  - DIARRHOEA [None]
  - EMPHYSEMA [None]
  - PULMONARY EMBOLISM [None]
